FAERS Safety Report 21352726 (Version 1)
Quarter: 2022Q3

REPORT INFORMATION
  Report Type: Spontaneous
  Country: US (occurrence: US)
  Receive Date: 20220920
  Receipt Date: 20220920
  Transmission Date: 20221027
  Serious: No
  Sender: FDA-Public Use
  Company Number: US-BAUSCHBL-2022BNL000305

PATIENT
  Sex: Female

DRUGS (1)
  1. VYZULTA [Suspect]
     Active Substance: LATANOPROSTENE BUNOD
     Indication: Glaucoma
     Route: 047

REACTIONS (7)
  - Eyelid pain [Unknown]
  - Instillation site pruritus [Unknown]
  - Reaction to excipient [Unknown]
  - Reaction to preservatives [Unknown]
  - Instillation site pain [Unknown]
  - Patient dissatisfaction with treatment [Unknown]
  - Inability to afford medication [Unknown]
